FAERS Safety Report 5593232-0 (Version None)
Quarter: 2008Q1

REPORT INFORMATION
  Report Type: 
  Country: None (occurrence: None)
  Receive Date: 20080116
  Receipt Date: 20080111
  Transmission Date: 20080703
  Serious: Yes (Hospitalization, Disabling)
  Sender: FDA-Public Use
  Company Number: FR-AVENTIS-200713335FR

PATIENT
  Age: 40 Year
  Sex: Female

DRUGS (2)
  1. LANTUS [Suspect]
     Route: 058
     Dates: start: 20040101
  2. NOVORAPID [Concomitant]
     Route: 058
     Dates: start: 20040101

REACTIONS (3)
  - ANTI-INSULIN ANTIBODY POSITIVE [None]
  - LIPOATROPHY [None]
  - MYALGIA [None]
